FAERS Safety Report 10056512 (Version 2)
Quarter: 2014Q2

REPORT INFORMATION
  Report Type: Spontaneous
  Country: DE (occurrence: DE)
  Receive Date: 20140403
  Receipt Date: 20140409
  Transmission Date: 20141212
  Serious: Yes (Other)
  Sender: FDA-Public Use
  Company Number: DE-GILEAD-2014-0098640

PATIENT
  Sex: Male

DRUGS (2)
  1. SOVALDI [Suspect]
     Indication: HEPATITIS CHOLESTATIC
     Dosage: UNK
  2. RIBAVIRIN [Concomitant]
     Indication: HEPATITIS CHOLESTATIC
     Route: 065

REACTIONS (2)
  - Hyperbilirubinaemia [Unknown]
  - Haemolysis [Unknown]
